FAERS Safety Report 15143584 (Version 1)
Quarter: 2018Q3

REPORT INFORMATION
  Report Type: Report from Study
  Country: CA (occurrence: CA)
  Receive Date: 20180713
  Receipt Date: 20180713
  Transmission Date: 20181010
  Serious: Yes (Other)
  Sender: FDA-Public Use
  Company Number: CA-JNJFOC-20180714264

PATIENT
  Age: 64 Year
  Sex: Male
  Weight: 61.9 kg

DRUGS (1)
  1. STELARA [Suspect]
     Active Substance: USTEKINUMAB
     Indication: PSORIASIS
     Dosage: STRENGTH = 45 MG
     Route: 058
     Dates: start: 20180320

REACTIONS (1)
  - Helicobacter infection [Recovering/Resolving]

NARRATIVE: CASE EVENT DATE: 20180705
